FAERS Safety Report 11321022 (Version 1)
Quarter: 2015Q3

REPORT INFORMATION
  Report Type: Spontaneous
  Country: US (occurrence: US)
  Receive Date: 20150729
  Receipt Date: 20150729
  Transmission Date: 20151125
  Serious: No
  Sender: FDA-Public Use
  Company Number: US-PFIZER INC-2015249991

PATIENT
  Age: 73 Year
  Sex: Female
  Weight: 95.24 kg

DRUGS (2)
  1. TOVIAZ [Suspect]
     Active Substance: FESOTERODINE FUMARATE
     Indication: BLADDER DISORDER
     Dosage: 8 MG, 1X/DAY (ONCE IN MORNING)
     Route: 048
     Dates: start: 20150716
  2. SYNTHROID [Concomitant]
     Active Substance: LEVOTHYROXINE SODIUM

REACTIONS (3)
  - Glossodynia [Not Recovered/Not Resolved]
  - Throat irritation [Not Recovered/Not Resolved]
  - Tongue dry [Not Recovered/Not Resolved]

NARRATIVE: CASE EVENT DATE: 20150720
